FAERS Safety Report 8572265 (Version 5)
Quarter: 2012Q4

REPORT INFORMATION
  Report Type: 
  Country: US (occurrence: US)
  Receive Date: 20120521
  Receipt Date: 20121214
  Transmission Date: 20130627
  Serious: Yes (Other)
  Sender: FDA-Public Use
  Company Number: US-ROCHE-1055158

PATIENT
  Age: 85 Year
  Sex: Male
  Weight: 83.08 kg

DRUGS (11)
  1. ZELBORAF [Suspect]
     Indication: MALIGNANT MELANOMA STAGE IV
     Route: 048
     Dates: start: 20120210
  2. ZELBORAF [Suspect]
     Route: 048
     Dates: start: 20120219
  3. ASPIRIN [Concomitant]
     Route: 048
  4. HYTRIN [Concomitant]
     Route: 048
  5. IMDUR [Concomitant]
     Route: 048
  6. PREDNISONE [Concomitant]
     Route: 048
  7. TERAZOSIN [Concomitant]
  8. SIMVASTATIN [Concomitant]
  9. ASCORBIC ACID [Concomitant]
     Route: 065
  10. METOPROLOL [Concomitant]
     Route: 048
  11. VITAMIN C [Concomitant]
     Route: 048

REACTIONS (13)
  - Pain in extremity [Not Recovered/Not Resolved]
  - Nasopharyngitis [Not Recovered/Not Resolved]
  - Arthralgia [Not Recovered/Not Resolved]
  - Alopecia [Not Recovered/Not Resolved]
  - Constipation [Not Recovered/Not Resolved]
  - Feeling abnormal [Not Recovered/Not Resolved]
  - Decreased appetite [Not Recovered/Not Resolved]
  - Squamous cell carcinoma [Not Recovered/Not Resolved]
  - Mass [Not Recovered/Not Resolved]
  - Rash [Not Recovered/Not Resolved]
  - Plantar fasciitis [Unknown]
  - Dysgeusia [Not Recovered/Not Resolved]
  - Fatigue [Not Recovered/Not Resolved]
